FAERS Safety Report 16229545 (Version 3)
Quarter: 2019Q2

REPORT INFORMATION
  Report Type: Spontaneous
  Country: US (occurrence: US)
  Receive Date: 20190423
  Receipt Date: 20190617
  Transmission Date: 20190711
  Serious: No
  Sender: FDA-Public Use
  Company Number: US-BAYER-2019-081405

PATIENT
  Age: 73 Year
  Sex: Female
  Weight: 91 kg

DRUGS (1)
  1. MIRALAX [Suspect]
     Active Substance: POLYETHYLENE GLYCOL 3350
     Indication: GASTROINTESTINAL DISORDER
     Dosage: 17 G, QOD
     Route: 048
     Dates: start: 2016

REACTIONS (2)
  - Dysgeusia [None]
  - Product solubility abnormal [Unknown]
